FAERS Safety Report 10131180 (Version 1)
Quarter: 2014Q2

REPORT INFORMATION
  Report Type: Spontaneous
  Country: US (occurrence: US)
  Receive Date: 20140428
  Receipt Date: 20140428
  Transmission Date: 20141212
  Serious: No
  Sender: FDA-Public Use
  Company Number: US-BAYER-2014-060698

PATIENT
  Age: 48 Year
  Sex: Female
  Weight: 68.03 kg

DRUGS (5)
  1. ALEVE TABLET [Suspect]
     Indication: ANALGESIC THERAPY
     Dosage: 1 DF, PRN
     Route: 048
     Dates: start: 201404
  2. METHADONE [Concomitant]
  3. XANAX [Concomitant]
  4. ZOLOFT [Concomitant]
  5. ADDERALL [Concomitant]

REACTIONS (1)
  - Opiates positive [None]
